FAERS Safety Report 20762951 (Version 2)
Quarter: 2022Q2

REPORT INFORMATION
  Report Type: Report from Study
  Country: CN (occurrence: None)
  Receive Date: 20220428
  Receipt Date: 20220512
  Transmission Date: 20220720
  Serious: Yes (Hospitalization)
  Sender: FDA-Public Use
  Company Number: CN-ROCHE-3083825

PATIENT
  Age: 74 Year
  Sex: Male
  Weight: 58 kg

DRUGS (21)
  1. TIRAGOLUMAB [Suspect]
     Active Substance: TIRAGOLUMAB
     Indication: Small cell lung cancer extensive stage
     Dosage: START DATE OF MOST RECENT DOSE OF STUDY DRUG PRIOR TO AE/SAE: 09/MAR/2022
     Route: 042
     Dates: start: 20210608
  2. ATEZOLIZUMAB [Suspect]
     Active Substance: ATEZOLIZUMAB
     Indication: Small cell lung cancer extensive stage
     Dosage: START DATE OF MOST RECENT DOSE 1200 MG OF STUDY DRUG PRIOR TO AE/SAE: 09/MAR/2022
     Route: 041
     Dates: start: 20210608
  3. CARBOPLATIN [Suspect]
     Active Substance: CARBOPLATIN
     Indication: Small cell lung cancer extensive stage
     Dosage: START DATE OF MOST RECENT DOSE 421 MG OF STUDY DRUG PRIOR TO AE/SAE: 12/AUG/2021
     Route: 042
     Dates: start: 20210608
  4. ETOPOSIDE [Suspect]
     Active Substance: ETOPOSIDE
     Indication: Small cell lung cancer extensive stage
     Dosage: START DATE OF MOST RECENT DOSE 160 MG OF STUDY DRUG PRIOR TO AE/SAE: 14/AUG/2021
     Route: 042
     Dates: start: 20210608
  5. CODEINE PHOSPHATE;PLATYCODON GRANDIFLORUS [Concomitant]
     Indication: Cough
     Dosage: 2 TABLET
     Route: 048
     Dates: start: 20211015, end: 20220420
  6. CODEINE PHOSPHATE;PLATYCODON GRANDIFLORUS [Concomitant]
     Dates: start: 20220506
  7. POTASSIUM CHLORIDE [Concomitant]
     Active Substance: POTASSIUM CHLORIDE
     Indication: Mineral supplementation
     Dosage: SUSTAINED-RELEASE TABLET
     Dates: start: 20220422, end: 20220427
  8. CEFTRIAXONE SODIUM [Concomitant]
     Active Substance: CEFTRIAXONE SODIUM
     Dates: start: 20220422, end: 20220426
  9. LEVOFLOXACIN HYDROCHLORIDE [Concomitant]
     Active Substance: LEVOFLOXACIN HYDROCHLORIDE
     Dates: start: 20220422, end: 20220427
  10. DYPHYLLINE [Concomitant]
     Active Substance: DYPHYLLINE
     Dates: start: 20220422, end: 20220427
  11. LEVOFLOXACIN HYDROCHLORIDE [Concomitant]
     Active Substance: LEVOFLOXACIN HYDROCHLORIDE
     Dates: start: 20220422, end: 20220426
  12. HYDROXYETHYL STARCH 40 SODIUM CHLORIDE [Concomitant]
     Dates: start: 20220422, end: 20220422
  13. POTASSIUM CHLORIDE [Concomitant]
     Active Substance: POTASSIUM CHLORIDE
     Indication: Mineral supplementation
     Dates: start: 20220422, end: 20220427
  14. VITAMIN C [Concomitant]
     Active Substance: ASCORBIC ACID
     Indication: Vitamin supplementation
     Dates: start: 20220422, end: 20220426
  15. VITAMIN B6 [Concomitant]
     Active Substance: PYRIDOXINE HYDROCHLORIDE
     Indication: Vitamin supplementation
     Dates: start: 20220422, end: 20220426
  16. MONTMORILLONITE [Concomitant]
     Active Substance: MONTMORILLONITE
     Indication: Diarrhoea
     Dates: start: 20220422, end: 20220425
  17. CHANG YAN NING [Concomitant]
     Indication: Diarrhoea
     Dates: start: 20220422, end: 20220427
  18. BUDESONIDE [Concomitant]
     Active Substance: BUDESONIDE
     Dates: start: 20220422, end: 20220423
  19. IPRATROPIUM BROMIDE [Concomitant]
     Active Substance: IPRATROPIUM BROMIDE
     Dates: start: 20220422, end: 20220423
  20. TRIAMCINOLONE ACETONIDE AND ECONAZOLE NITRATE [Concomitant]
     Indication: Pruritus
     Route: 062
     Dates: start: 20220406, end: 20220503
  21. SHENG XUE BAO [Concomitant]
     Indication: Anaemia
     Dates: start: 20220422, end: 20220424

REACTIONS (1)
  - Myelosuppression [Recovered/Resolved]

NARRATIVE: CASE EVENT DATE: 20220422
